FAERS Safety Report 26077221 (Version 1)
Quarter: 2025Q4

REPORT INFORMATION
  Report Type: Spontaneous
  Country: US (occurrence: US)
  Receive Date: 20251121
  Receipt Date: 20251121
  Transmission Date: 20260118
  Serious: Yes (Other)
  Sender: NOVO NORDISK
  Company Number: US-NOVOPROD-1567246

PATIENT
  Age: 54 Year
  Sex: Male

DRUGS (1)
  1. NOVOLOG [Suspect]
     Active Substance: INSULIN ASPART
     Indication: Type 1 diabetes mellitus
     Dosage: 6-12IU (BEFORE SUPPER), 4-10IU (FOR LUNCH), 4-10IU (FOR BREAKFAST)
     Route: 058
     Dates: start: 1999

REACTIONS (11)
  - Speech disorder [Recovered/Resolved]
  - Cold sweat [Recovered/Resolved]
  - Ketoacidosis [Recovered/Resolved]
  - Diabetes mellitus inadequate control [Recovered/Resolved]
  - Product quality issue [Recovered/Resolved]
  - Feeling abnormal [Recovered/Resolved]
  - Hyperhidrosis [Recovered/Resolved]
  - Abdominal pain upper [Recovered/Resolved]
  - Urinary incontinence [Recovered/Resolved]
  - Anal incontinence [Recovered/Resolved]
  - Adverse event [Unknown]

NARRATIVE: CASE EVENT DATE: 20250901
